FAERS Safety Report 24708870 (Version 1)
Quarter: 2024Q4

REPORT INFORMATION
  Report Type: Report from Study
  Country: CA (occurrence: CA)
  Receive Date: 20241207
  Receipt Date: 20241207
  Transmission Date: 20250114
  Serious: Yes (Hospitalization, Other)
  Sender: BIOCON
  Company Number: CA-BIOCON BIOLOGICS LIMITED-BBL2024008882

PATIENT

DRUGS (1)
  1. HULIO [Suspect]
     Active Substance: ADALIMUMAB-FKJP
     Indication: Product used for unknown indication
     Dosage: 40 MILLIGRAM, QW
     Route: 058

REACTIONS (4)
  - Scab [Not Recovered/Not Resolved]
  - Blister [Not Recovered/Not Resolved]
  - Pneumonia [Unknown]
  - Hand-foot-and-mouth disease [Unknown]
